FAERS Safety Report 18693894 (Version 2)
Quarter: 2021Q1

REPORT INFORMATION
  Report Type: Spontaneous
  Country: JP (occurrence: JP)
  Receive Date: 20210104
  Receipt Date: 20210322
  Transmission Date: 20210419
  Serious: Yes (Other)
  Sender: FDA-Public Use
  Company Number: NVSJ2020JP012553

PATIENT
  Age: 48 Year
  Sex: Female

DRUGS (1)
  1. VOTRIENT [Suspect]
     Active Substance: PAZOPANIB HYDROCHLORIDE
     Indication: UTERINE LEIOMYOSARCOMA
     Dosage: UNK
     Route: 048
     Dates: start: 201902, end: 201909

REACTIONS (4)
  - Eosinophilic granulomatosis with polyangiitis [Unknown]
  - Eosinophil count increased [Unknown]
  - Skin ulcer [Unknown]
  - Purpura [Unknown]
